FAERS Safety Report 16746193 (Version 1)
Quarter: 2019Q4

REPORT INFORMATION
  Report Type: Spontaneous
  Country: US (occurrence: US)
  Receive Date: 20190827
  Receipt Date: 20190827
  Transmission Date: 20200122
  Serious: Yes (Disabling)
  Sender: FDA-Public Use
  Company Number: None

PATIENT
  Age: 39 Year
  Sex: Female
  Weight: 67.5 kg

DRUGS (1)
  1. AJOVY [Suspect]
     Active Substance: FREMANEZUMAB-VFRM
     Indication: MIGRAINE
     Dosage: ?          QUANTITY:1 INJECTION(S);OTHER FREQUENCY:ONCE A MONTH;?
     Route: 058
     Dates: start: 20190223, end: 20190727

REACTIONS (9)
  - Gastrooesophageal reflux disease [None]
  - Vitamin B12 decreased [None]
  - Pain of skin [None]
  - Insomnia [None]
  - Pruritus [None]
  - Middle insomnia [None]
  - Abdominal distension [None]
  - Rash [None]
  - Abdominal pain upper [None]

NARRATIVE: CASE EVENT DATE: 20190501
